FAERS Safety Report 6221565-3 (Version None)
Quarter: 2009Q2

REPORT INFORMATION
  Report Type: 
  Country: None (occurrence: None)
  Receive Date: 20090610
  Receipt Date: 20080513
  Transmission Date: 20091009
  Serious: Yes (Other)
  Sender: FDA-Public Use
  Company Number: HR-JNJFOC-20080501058

PATIENT
  Age: 52 Year
  Sex: Female

DRUGS (11)
  1. RISPOLEPT CONSTA [Suspect]
  2. RISPOLEPT CONSTA [Suspect]
     Indication: SCHIZOPHRENIA
  3. RISPERIDONE [Suspect]
     Route: 048
  4. RISPERIDONE [Suspect]
     Route: 048
  5. RISPERIDONE [Suspect]
     Indication: SCHIZOPHRENIA
     Route: 048
  6. AKINETON [Concomitant]
  7. MISAR [Concomitant]
  8. AMYZOL [Concomitant]
  9. EGLONYL [Concomitant]
  10. FURSEMID [Concomitant]
  11. KALINOR [Concomitant]

REACTIONS (1)
  - EYE SWELLING [None]
